FAERS Safety Report 14807132 (Version 1)
Quarter: 2018Q2

REPORT INFORMATION
  Report Type: Spontaneous
  Country: US (occurrence: US)
  Receive Date: 20180425
  Receipt Date: 20180425
  Transmission Date: 20180711
  Serious: No
  Sender: FDA-Public Use
  Company Number: US-ROCHE-2089470

PATIENT
  Age: 52 Year
  Sex: Female
  Weight: 79 kg

DRUGS (1)
  1. OCREVUS [Suspect]
     Active Substance: OCRELIZUMAB
     Indication: MULTIPLE SCLEROSIS
     Dosage: FIRST OCREVUS INFUSION ;ONGOING: NO
     Route: 042
     Dates: start: 20180308, end: 20180308

REACTIONS (5)
  - Neck pain [Recovered/Resolved]
  - Lip pruritus [Recovered/Resolved]
  - Pruritus [Not Recovered/Not Resolved]
  - Dyspnoea [Recovered/Resolved]
  - Oral pruritus [Recovered/Resolved]

NARRATIVE: CASE EVENT DATE: 20180308
